FAERS Safety Report 18777427 (Version 2)
Quarter: 2021Q2

REPORT INFORMATION
  Report Type: Spontaneous
  Country: FR (occurrence: FR)
  Receive Date: 20210122
  Receipt Date: 20210525
  Transmission Date: 20210717
  Serious: Yes (Other)
  Sender: FDA-Public Use
  Company Number: FR-ASTRAZENECA-2021A009541

PATIENT
  Age: 878 Month
  Sex: Female

DRUGS (1)
  1. LYNPARZA [Suspect]
     Active Substance: OLAPARIB
     Indication: OVARIAN CANCER METASTATIC
     Route: 048
     Dates: start: 202009

REACTIONS (14)
  - Tumour marker abnormal [Unknown]
  - Alopecia [Recovered/Resolved]
  - Hair texture abnormal [Recovering/Resolving]
  - Gastrointestinal disorder [Not Recovered/Not Resolved]
  - Arthralgia [Not Recovered/Not Resolved]
  - Vomiting [Recovered/Resolved]
  - Aerophagia [Not Recovered/Not Resolved]
  - Osteoarthritis [Not Recovered/Not Resolved]
  - Pain in extremity [Not Recovered/Not Resolved]
  - Joint dislocation [Unknown]
  - Computerised tomogram abnormal [Unknown]
  - Fatigue [Not Recovered/Not Resolved]
  - Nausea [Recovered/Resolved]
  - Trichorrhexis [Recovering/Resolving]

NARRATIVE: CASE EVENT DATE: 202009
